FAERS Safety Report 8589330-X (Version None)
Quarter: 2012Q3

REPORT INFORMATION
  Report Type: 
  Country: None (occurrence: None)
  Receive Date: 20120813
  Receipt Date: 20120731
  Transmission Date: 20120928
  Serious: Yes (Death)
  Sender: FDA-Public Use
  Company Number: PL-ELI_LILLY_AND_COMPANY-PL201010003605

PATIENT
  Sex: Male
  Weight: 72 kg

DRUGS (4)
  1. NECITUMUMAB (11F8) (LY3012211) [Suspect]
     Indication: NON-SMALL CELL LUNG CANCER
     Dosage: 800 MG, MONTHLY (1/M)
     Route: 042
     Dates: start: 20100915
  2. CISPLATIN [Suspect]
     Indication: NON-SMALL CELL LUNG CANCER
     Dosage: 135 MG, OTHER
     Route: 042
     Dates: start: 20100915
  3. GEMCITABINE HYDROCHLORIDE [Suspect]
     Indication: NON-SMALL CELL LUNG CANCER
     Dosage: 2250 MG, OTHER
     Route: 042
     Dates: start: 20100915
  4. METFORMIN HYDROCHLORIDE [Concomitant]
     Dates: start: 20090101

REACTIONS (1)
  - DEATH [None]
